FAERS Safety Report 7926862-9 (Version None)
Quarter: 2011Q4

REPORT INFORMATION
  Report Type: 
  Country: None (occurrence: None)
  Receive Date: 20111118
  Receipt Date: 20111115
  Transmission Date: 20120403
  Serious: Yes (Hospitalization, Other)
  Sender: FDA-Public Use
  Company Number: JP-PFIZER INC-2011234494

PATIENT
  Age: 45 Year
  Sex: Female
  Weight: 48 kg

DRUGS (5)
  1. VARENICLINE TARTRATE [Suspect]
     Dosage: 1 MG, 2X/DAY
     Route: 048
     Dates: start: 20110817, end: 20110909
  2. VARENICLINE TARTRATE [Suspect]
     Dosage: 1 MG, 2X/DAY
     Route: 048
     Dates: start: 20110730, end: 20110812
  3. VARENICLINE TARTRATE [Suspect]
     Dosage: 0.5 MG, 2X/DAY
     Route: 048
     Dates: start: 20110716, end: 20110719
  4. VARENICLINE TARTRATE [Suspect]
     Dosage: 1 MG, 2X/DAY
     Route: 048
     Dates: start: 20110720, end: 20110725
  5. VARENICLINE TARTRATE [Suspect]
     Indication: SMOKING CESSATION THERAPY
     Dosage: 0.5 MG, 1X/DAY
     Route: 048
     Dates: start: 20110713, end: 20110715

REACTIONS (5)
  - LOSS OF CONSCIOUSNESS [None]
  - MENINGIOMA [None]
  - SINUS TACHYCARDIA [None]
  - ELECTROCARDIOGRAM ST SEGMENT DEPRESSION [None]
  - TONIC CONVULSION [None]
